FAERS Safety Report 7010914-4 (Version None)
Quarter: 2010Q3

REPORT INFORMATION
  Report Type: 
  Country: None (occurrence: None)
  Receive Date: 20100923
  Receipt Date: 20100923
  Transmission Date: 20110219
  Serious: Yes (Other)
  Sender: FDA-Public Use
  Company Number: None

PATIENT
  Sex: Male
  Weight: 63.5036 kg

DRUGS (5)
  1. LEVAQUIN [Suspect]
     Indication: OROPHARYNGEAL PAIN
     Dosage: 750 MG 1 PER DAY FOR 10 DAYS ORAL
     Route: 048
     Dates: start: 20100901, end: 20100910
  2. FLAGYL [Suspect]
     Indication: OROPHARYNGEAL PAIN
     Dosage: 500 MG 2 PER DAY FOR 10 DAYS ORAL
     Route: 048
     Dates: start: 20100901, end: 20100910
  3. PREDNISONE [Concomitant]
  4. VISTARIL [Concomitant]
  5. INDERAL [Concomitant]

REACTIONS (20)
  - ABNORMAL DREAMS [None]
  - ANXIETY [None]
  - BALANCE DISORDER [None]
  - BLOOD PRESSURE INCREASED [None]
  - CONFUSIONAL STATE [None]
  - DIZZINESS [None]
  - DRY MOUTH [None]
  - DYSGEUSIA [None]
  - ERYTHEMA [None]
  - FATIGUE [None]
  - FEELING HOT [None]
  - FORMICATION [None]
  - HEART RATE INCREASED [None]
  - IMPAIRED DRIVING ABILITY [None]
  - INSOMNIA [None]
  - PALPITATIONS [None]
  - PANIC REACTION [None]
  - PARAESTHESIA [None]
  - SKIN BURNING SENSATION [None]
  - SUNBURN [None]
